FAERS Safety Report 8238184-X (Version None)
Quarter: 2012Q1

REPORT INFORMATION
  Report Type: 
  Country: None (occurrence: None)
  Receive Date: 20120327
  Receipt Date: 20120319
  Transmission Date: 20120608
  Serious: Yes (Other)
  Sender: FDA-Public Use
  Company Number: TR-BAYER-2012-026836

PATIENT
  Age: 28 Year
  Sex: Female
  Weight: 70 kg

DRUGS (2)
  1. ASPIRIN [Suspect]
     Indication: ANTIPYRESIS
     Dosage: 10 DF, UNK
     Route: 048
     Dates: start: 20120307, end: 20120307
  2. ASPIRIN [Suspect]
     Indication: ANALGESIC THERAPY

REACTIONS (2)
  - SUICIDE ATTEMPT [None]
  - TOXICITY TO VARIOUS AGENTS [None]
